FAERS Safety Report 12368067 (Version 1)
Quarter: 2016Q2

REPORT INFORMATION
  Report Type: Spontaneous
  Country: US (occurrence: US)
  Receive Date: 20160513
  Receipt Date: 20160513
  Transmission Date: 20160815
  Serious: No
  Sender: FDA-Public Use
  Company Number: US-JNJFOC-20160325023

PATIENT
  Sex: Male
  Weight: 60 kg

DRUGS (4)
  1. MENS ROGAINE EXTRA STRENGTH [Suspect]
     Active Substance: MINOXIDIL
     Indication: ALOPECIA
     Dosage: 1/2 CAPFUL
     Route: 061
  2. FINASTERIDE. [Suspect]
     Active Substance: FINASTERIDE
     Indication: HAIR GROWTH ABNORMAL
     Dosage: 1/4 TABLET
     Route: 065
  3. KIRKLAND SIGNATURE MINOXIDIL [Concomitant]
     Active Substance: MINOXIDIL
     Indication: ALOPECIA
     Route: 065
  4. MENS ROGAINE EXTRA STRENGTH [Suspect]
     Active Substance: MINOXIDIL
     Indication: ALOPECIA
     Route: 061

REACTIONS (2)
  - Alopecia [Not Recovered/Not Resolved]
  - Inappropriate schedule of drug administration [Not Recovered/Not Resolved]
